FAERS Safety Report 17901821 (Version 1)
Quarter: 2020Q2

REPORT INFORMATION
  Report Type: Spontaneous
  Country: IT (occurrence: IT)
  Receive Date: 20200616
  Receipt Date: 20200616
  Transmission Date: 20200714
  Serious: Yes (Life-Threatening, Other)
  Sender: FDA-Public Use
  Company Number: IT-SA-2020SA154466

PATIENT

DRUGS (11)
  1. AMLODIPIN ZENTIVA [Concomitant]
  2. LINEZOLID KABI [Concomitant]
     Active Substance: LINEZOLID
     Dosage: UNK
  3. MEROPENEM HIKMA [Concomitant]
     Active Substance: MEROPENEM
     Dosage: UNK
  4. ABASAGLAR [Concomitant]
     Active Substance: INSULIN GLARGINE
     Dosage: UNK
  5. DELTACORTENE [Concomitant]
     Active Substance: PREDNISONE
     Dosage: UNK
  6. PANTOPRAZOLE SUN [Concomitant]
     Active Substance: PANTOPRAZOLE SODIUM
     Dosage: UNK
  7. LENTO-KALIUM [Concomitant]
     Active Substance: POTASSIUM CHLORIDE
     Dosage: UNK
  8. MYCOSTATIN [Concomitant]
     Active Substance: NYSTATIN
     Dosage: UNK
  9. APIDRA [Concomitant]
     Active Substance: INSULIN GLULISINE
     Dosage: UNK
  10. CLEXANE [Suspect]
     Active Substance: ENOXAPARIN SODIUM
     Indication: THROMBOSIS PROPHYLAXIS
     Dosage: 1 DF, QD
     Route: 058
     Dates: start: 20200326, end: 20200403
  11. CARDICOR [Concomitant]
     Active Substance: BISOPROLOL
     Dosage: UNK

REACTIONS (3)
  - Coronavirus infection [Recovering/Resolving]
  - Pain [Recovering/Resolving]
  - Haemorrhage [Recovering/Resolving]

NARRATIVE: CASE EVENT DATE: 20200403
